FAERS Safety Report 9247317 (Version 1)
Quarter: 2013Q2

REPORT INFORMATION
  Report Type: Report from Study
  Country: CA (occurrence: CA)
  Receive Date: 20130423
  Receipt Date: 20130423
  Transmission Date: 20140414
  Serious: Yes (Other)
  Sender: FDA-Public Use
  Company Number: CA-JNJFOC-20130409971

PATIENT
  Sex: Female
  Weight: 70.5 kg

DRUGS (3)
  1. REMICADE [Suspect]
     Indication: CROHN^S DISEASE
     Route: 042
     Dates: start: 20120627
  2. MERCAPTOPURINE [Concomitant]
     Route: 065
  3. VITAMINS NOS [Concomitant]
     Route: 065

REACTIONS (1)
  - Basal cell carcinoma [Unknown]
